FAERS Safety Report 24222942 (Version 1)
Quarter: 2024Q3

REPORT INFORMATION
  Report Type: Spontaneous
  Country: US (occurrence: None)
  Receive Date: 20240816
  Receipt Date: 20240816
  Transmission Date: 20241016
  Serious: Yes (Hospitalization)
  Sender: Public
  Company Number: None

PATIENT
  Age: 42 Year
  Sex: Female
  Weight: 61.65 kg

DRUGS (3)
  1. DROPERIDOL [Suspect]
     Active Substance: DROPERIDOL
     Indication: Nausea
     Dates: start: 20240812, end: 20240812
  2. VITAMINS [Concomitant]
     Active Substance: VITAMINS
  3. omegas [Concomitant]

REACTIONS (1)
  - Akathisia [None]

NARRATIVE: CASE EVENT DATE: 20240812
